FAERS Safety Report 16536291 (Version 6)
Quarter: 2019Q3

REPORT INFORMATION
  Report Type: Spontaneous
  Country: US (occurrence: US)
  Receive Date: 20190705
  Receipt Date: 20190808
  Transmission Date: 20191004
  Serious: No
  Sender: FDA-Public Use
  Company Number: US-PFIZER INC-2019280209

PATIENT
  Age: 77 Year
  Sex: Female
  Weight: 57 kg

DRUGS (12)
  1. LYRICA [Suspect]
     Active Substance: PREGABALIN
     Dosage: 300 MG, 1X/DAY (TAKE 150 MG IN THE MORNING AND 150 MG AT NIGHT, BUT SHE TAKES BOTH AT NIGHT)
  2. LYRICA [Suspect]
     Active Substance: PREGABALIN
     Dosage: 125 MG, 1X/DAY [125 MG ONE A DAY X1WK ]
  3. LYRICA [Suspect]
     Active Substance: PREGABALIN
     Dosage: 150 MG, UNK
  4. LYRICA [Suspect]
     Active Substance: PREGABALIN
     Dosage: UNK
  5. ASPIRIN [ACETYLSALICYLIC ACID;ASCORBIC ACID] [Concomitant]
     Active Substance: ACETAMINOPHEN\ASCORBIC ACID
     Indication: CEREBROVASCULAR ACCIDENT
     Dosage: 81 MG, UNK (FOR PAST 20 YEARS)
  6. LYRICA [Suspect]
     Active Substance: PREGABALIN
     Indication: PARAESTHESIA
     Dosage: UNK
  7. LYRICA [Suspect]
     Active Substance: PREGABALIN
     Dosage: 50 MG, 1X/DAY [50MG ONE A DAY X1WK]
  8. LYRICA [Suspect]
     Active Substance: PREGABALIN
     Dosage: 75 MG, 1X/DAY  [75 MG ONE A DAY X1WK]
  9. LYRICA [Suspect]
     Active Substance: PREGABALIN
     Dosage: 50 MG, 1X/DAY (BY MOUTH ONCE DAILY)
     Route: 048
     Dates: start: 201805
  10. LYRICA [Suspect]
     Active Substance: PREGABALIN
     Dosage: 100 MG, UNK
  11. LYRICA [Suspect]
     Active Substance: PREGABALIN
     Dosage: 75 MG, 2X/DAY
     Dates: start: 20190514
  12. LYRICA [Suspect]
     Active Substance: PREGABALIN
     Dosage: 125 MG, UNK

REACTIONS (4)
  - Peripheral swelling [Unknown]
  - Intentional product misuse [Unknown]
  - Somnolence [Not Recovered/Not Resolved]
  - Muscle spasms [Not Recovered/Not Resolved]

NARRATIVE: CASE EVENT DATE: 20190531
